FAERS Safety Report 24027398 (Version 1)
Quarter: 2024Q2

REPORT INFORMATION
  Report Type: Spontaneous
  Country: CN (occurrence: CN)
  Receive Date: 20240628
  Receipt Date: 20240628
  Transmission Date: 20240716
  Serious: Yes (Hospitalization, Other)
  Sender: FDA-Public Use
  Company Number: CN-BEIGENE-BGN-2024-009491

PATIENT

DRUGS (4)
  1. TISLELIZUMAB [Suspect]
     Active Substance: TISLELIZUMAB
     Indication: Bile duct cancer
     Dosage: 200 MILLIGRAM D1
     Route: 041
     Dates: start: 20240607
  2. CISPLATIN [Suspect]
     Active Substance: CISPLATIN
     Indication: Bile duct cancer
     Dosage: 20 MILLIGRAM D1-D4
     Route: 041
     Dates: start: 20240607, end: 20240609
  3. LENVATINIB MESYLATE [Suspect]
     Active Substance: LENVATINIB MESYLATE
     Indication: Bile duct cancer
     Dosage: 8 MILLIGRAM, QD
     Route: 048
     Dates: start: 20240607
  4. PACLITAXEL [Suspect]
     Active Substance: PACLITAXEL
     Indication: Bile duct cancer
     Dosage: 150 MILLIGRAM D1
     Route: 041
     Dates: start: 20240607

REACTIONS (6)
  - Neutrophil count decreased [Recovering/Resolving]
  - Pyrexia [Recovering/Resolving]
  - Nausea [Unknown]
  - Vomiting [Unknown]
  - Abdominal pain upper [Unknown]
  - Chills [Unknown]

NARRATIVE: CASE EVENT DATE: 20240610
